FAERS Safety Report 13736811 (Version 2)
Quarter: 2018Q2

REPORT INFORMATION
  Report Type: Report from Study
  Country: ES (occurrence: ES)
  Receive Date: 20170710
  Receipt Date: 20180618
  Transmission Date: 20180711
  Serious: Yes (Hospitalization)
  Sender: FDA-Public Use
  Company Number: ES-CELGENEUS-ESP-20170604841

PATIENT
  Age: 62 Year
  Sex: Female
  Weight: 61 kg

DRUGS (9)
  1. POMALIDOMIDE [Suspect]
     Active Substance: POMALIDOMIDE
     Indication: PLASMA CELL MYELOMA
     Dosage: 4 MILLIGRAM
     Route: 048
     Dates: start: 20170606, end: 20170611
  2. FILANESIB [Suspect]
     Active Substance: FILANESIB
     Route: 041
     Dates: start: 20170703
  3. FILANESIB [Suspect]
     Active Substance: FILANESIB
     Indication: PLASMA CELL MYELOMA
     Dosage: 1.98 MILLIGRAM
     Route: 041
     Dates: start: 20170605, end: 20170606
  4. DEXAMETHASONE ORAL [Suspect]
     Active Substance: DEXAMETHASONE
     Indication: PLASMA CELL MYELOMA
     Dosage: 40 MILLIGRAM
     Route: 048
     Dates: start: 20170605, end: 20170615
  5. CALCIO GLUCONATO [Concomitant]
     Active Substance: CALCIUM GLUCONATE
     Indication: PRODUCT USED FOR UNKNOWN INDICATION
     Dosage: 4.5 MILLIGRAM
     Route: 041
     Dates: start: 20170612
  6. DEXAMETHASONE ORAL [Suspect]
     Active Substance: DEXAMETHASONE
     Dosage: 40 MILLIGRAM
     Route: 048
     Dates: start: 20170605, end: 20170605
  7. FLUCONAZOL [Concomitant]
     Active Substance: FLUCONAZOLE
     Indication: PRODUCT USED FOR UNKNOWN INDICATION
     Dosage: 400 MILLIGRAM
     Route: 041
     Dates: start: 20170612, end: 20170612
  8. FLUCONAZOL [Concomitant]
     Active Substance: FLUCONAZOLE
     Dosage: 200 MILLIGRAM
     Route: 041
     Dates: start: 20170613
  9. LEVOTHYROXINE. [Concomitant]
     Active Substance: LEVOTHYROXINE
     Indication: PRODUCT USED FOR UNKNOWN INDICATION
     Route: 065

REACTIONS (1)
  - Adrenal insufficiency [Recovered/Resolved]

NARRATIVE: CASE EVENT DATE: 20170611
